FAERS Safety Report 13740054 (Version 1)
Quarter: 2017Q3

REPORT INFORMATION
  Report Type: Spontaneous
  Country: US (occurrence: US)
  Receive Date: 20170710
  Receipt Date: 20170710
  Transmission Date: 20171127
  Serious: Yes (Hospitalization)
  Sender: FDA-Public Use
  Company Number: None

PATIENT
  Age: 80 Year
  Sex: Female

DRUGS (1)
  1. ORENCIA [Suspect]
     Active Substance: ABATACEPT
     Indication: OSTEOPOROSIS
     Dosage: ?          OTHER DOSE:MG;?
     Route: 042

REACTIONS (3)
  - Hospitalisation [None]
  - Drug dose omission [None]
  - Localised infection [None]

NARRATIVE: CASE EVENT DATE: 20170707
